FAERS Safety Report 8406264-1 (Version None)
Quarter: 2012Q2

REPORT INFORMATION
  Report Type: 
  Country: None (occurrence: None)
  Receive Date: 20120604
  Receipt Date: 20120529
  Transmission Date: 20120825
  Serious: Yes (Hospitalization)
  Sender: FDA-Public Use
  Company Number: US-BAYER-2012-009535

PATIENT
  Age: 23 Year
  Sex: Female
  Weight: 58.957 kg

DRUGS (10)
  1. SODIUM CHLORIDE [Concomitant]
     Dosage: 1000 ML, UNK
     Route: 041
     Dates: start: 20101007
  2. YAZ [Suspect]
     Dosage: UNK
     Dates: start: 20060501, end: 20080101
  3. IBUPROFEN [Concomitant]
     Dosage: UNK
     Route: 048
     Dates: start: 20100101
  4. ALBUTEROL [Concomitant]
     Dosage: 2 INHALES
     Route: 045
     Dates: start: 20100727
  5. ROBUTUSSIN [Concomitant]
     Dosage: 10 ML, UNK
     Dates: start: 20100727
  6. ZOFRAN [Concomitant]
     Dosage: 4 MG, UNK
     Route: 040
     Dates: start: 20101007
  7. ZITHROMAX [Concomitant]
     Dosage: UNK
     Route: 048
     Dates: start: 20100727
  8. PREVACID [Concomitant]
  9. ACETAMINOPHEN [Concomitant]
  10. GI (INTERPRETED AS GASTROINTESTINAL) COCKTAIL [Concomitant]
     Dosage: UNK
     Route: 048
     Dates: start: 20101007

REACTIONS (3)
  - INJURY [None]
  - CHOLECYSTITIS CHRONIC [None]
  - GALLBLADDER DISORDER [None]
